FAERS Safety Report 9022204 (Version 1)
Quarter: 2013Q1

REPORT INFORMATION
  Report Type: Spontaneous
  Country: FR (occurrence: FR)
  Receive Date: 20130118
  Receipt Date: 20130118
  Transmission Date: 20140127
  Serious: Yes (Other)
  Sender: FDA-Public Use
  Company Number: FR-BRISTOL-MYERS SQUIBB COMPANY-17284852

PATIENT
  Age: 83 Year
  Sex: Female

DRUGS (7)
  1. ERBITUX SOLN FOR INF [Suspect]
     Indication: TONGUE NEOPLASM MALIGNANT STAGE UNSPECIFIED
     Dosage: NO OF COURESE: 06
     Route: 042
     Dates: start: 20120105, end: 20120910
  2. CRESTOR [Concomitant]
     Route: 048
  3. PLAVIX [Concomitant]
     Dosage: TAB
     Route: 048
  4. ATENOLOL [Concomitant]
     Route: 048
  5. EXFORGE [Concomitant]
     Route: 048
  6. LOGIRENE [Concomitant]
     Route: 048
  7. LAROXYL [Concomitant]
     Route: 048

REACTIONS (1)
  - Pulmonary fibrosis [Not Recovered/Not Resolved]
